FAERS Safety Report 4568697-3 (Version None)
Quarter: 2005Q1

REPORT INFORMATION
  Report Type: 
  Country: None (occurrence: None)
  Receive Date: 20050202
  Receipt Date: 20040219
  Transmission Date: 20050727
  Serious: Yes (Hospitalization, Disabling)
  Sender: FDA-Public Use
  Company Number: US-MERCK-0402USA01454

PATIENT
  Age: 25 Year
  Sex: Female
  Weight: 52 kg

DRUGS (9)
  1. VIOXX [Suspect]
     Indication: INTERVERTEBRAL DISC DEGENERATION
     Route: 048
     Dates: start: 20020107, end: 20020209
  2. VIOXX [Suspect]
     Route: 048
     Dates: start: 20030116, end: 20030206
  3. VIOXX [Suspect]
     Indication: INTERVERTEBRAL DISC PROTRUSION
     Route: 048
     Dates: start: 20020107, end: 20020209
  4. VIOXX [Suspect]
     Route: 048
     Dates: start: 20030116, end: 20030206
  5. ASPIRIN [Concomitant]
     Route: 065
     Dates: start: 19770928
  6. ECHINACEA [Concomitant]
     Route: 065
     Dates: start: 20000101, end: 20040122
  7. CYCLOBENZAPRINE HYDROCHLORIDE [Concomitant]
     Route: 065
  8. DICYCLOMINE HYDROCHLORIDE [Concomitant]
     Route: 065
  9. NEXIUM [Concomitant]
     Route: 065

REACTIONS (31)
  - ABDOMINAL PAIN UPPER [None]
  - CERVICOBRACHIAL SYNDROME [None]
  - CHEST DISCOMFORT [None]
  - COUGH [None]
  - DYSPNOEA [None]
  - EMOTIONAL DISTRESS [None]
  - FATIGUE [None]
  - GASTROINTESTINAL HAEMORRHAGE [None]
  - GASTROINTESTINAL ULCER [None]
  - GASTROOESOPHAGEAL REFLUX DISEASE [None]
  - HAEMORRHAGE [None]
  - HYPERSENSITIVITY [None]
  - INTERVERTEBRAL DISC DEGENERATION [None]
  - INTERVERTEBRAL DISC PROTRUSION [None]
  - MALAISE [None]
  - MELAENA [None]
  - MIGRAINE [None]
  - MITRAL VALVE PROLAPSE [None]
  - MULTIPLE ALLERGIES [None]
  - MUSCLE SPASMS [None]
  - MUSCULOSKELETAL PAIN [None]
  - NASAL CONGESTION [None]
  - NAUSEA [None]
  - NECK PAIN [None]
  - PAIN IN EXTREMITY [None]
  - PALLOR [None]
  - PHARYNGOLARYNGEAL PAIN [None]
  - RECTAL HAEMORRHAGE [None]
  - SMALL INTESTINAL ULCER HAEMORRHAGE [None]
  - UPPER RESPIRATORY TRACT INFECTION [None]
  - VIRAL INFECTION [None]
